FAERS Safety Report 5930991-9 (Version None)
Quarter: 2008Q4

REPORT INFORMATION
  Report Type: 
  Country: None (occurrence: None)
  Receive Date: 20081022
  Receipt Date: 20081014
  Transmission Date: 20090506
  Serious: Yes (Other)
  Sender: FDA-Public Use
  Company Number: ADE2008-0340

PATIENT
  Age: 44 Year
  Sex: Male

DRUGS (1)
  1. FINASTERIDE [Suspect]
     Dosage: 1 MG DAILY- ORAL
     Route: 048
     Dates: start: 20050101

REACTIONS (2)
  - PRURITUS [None]
  - SYSTEMIC LUPUS ERYTHEMATOSUS [None]
